FAERS Safety Report 15431858 (Version 1)
Quarter: 2018Q3

REPORT INFORMATION
  Report Type: Report from Study
  Country: IN (occurrence: IN)
  Receive Date: 20180926
  Receipt Date: 20180926
  Transmission Date: 20181010
  Serious: Yes (Other)
  Sender: FDA-Public Use
  Company Number: PHHY2018IN101994

PATIENT
  Age: 70 Year
  Sex: Male
  Weight: 55 kg

DRUGS (1)
  1. VYMADA [Suspect]
     Active Substance: SACUBITRIL\VALSARTAN
     Indication: CARDIAC FAILURE CHRONIC
     Dosage: 50 MG (24 MG/ 26 MG), BID
     Route: 048
     Dates: start: 20170901, end: 20180814

REACTIONS (4)
  - Blood pressure decreased [Unknown]
  - Diabetes mellitus [Unknown]
  - Infection [Unknown]
  - Renal disorder [Unknown]
